FAERS Safety Report 4964900-6 (Version None)
Quarter: 2006Q2

REPORT INFORMATION
  Report Type: 
  Country: None (occurrence: None)
  Receive Date: 20060406
  Receipt Date: 20060327
  Transmission Date: 20061013
  Serious: Yes (Hospitalization, Other)
  Sender: FDA-Public Use
  Company Number: DE-JNJFOC-20060202603

PATIENT

DRUGS (6)
  1. TOPAMAX [Suspect]
     Route: 048
  2. TOPAMAX [Suspect]
     Route: 048
  3. VIGABATRIN [Concomitant]
     Route: 048
  4. PHENOBARBITAL TAB [Concomitant]
     Route: 048
  5. URSO FALK [Concomitant]
     Route: 048
  6. THEOPHYLLINE [Concomitant]
     Route: 048

REACTIONS (1)
  - PULMONARY OEDEMA [None]
